FAERS Safety Report 8189230-3 (Version None)
Quarter: 2012Q1

REPORT INFORMATION
  Report Type: 
  Country: None (occurrence: None)
  Receive Date: 20120307
  Receipt Date: 20120224
  Transmission Date: 20120608
  Serious: Yes (Hospitalization, Other)
  Sender: FDA-Public Use
  Company Number: US-BAYER-2011-070673

PATIENT
  Age: 50 Year
  Sex: Female
  Weight: 108.84 kg

DRUGS (11)
  1. YAZ [Suspect]
     Indication: CONTRACEPTION
     Dosage: UNK
     Route: 048
     Dates: start: 20060301, end: 20060901
  2. YAZ [Suspect]
     Indication: PREMENSTRUAL SYNDROME
  3. YAZ [Suspect]
  4. IBUPROFEN [Concomitant]
     Dosage: UNK
     Dates: start: 20060101
  5. LEXAPRO [Concomitant]
     Indication: STRESS
     Dosage: UNK
     Dates: start: 20050101
  6. POTASSIUM [POTASSIUM CHLORIDE] [Concomitant]
     Dosage: UNK
     Dates: start: 20000101
  7. NORVASC [Concomitant]
     Indication: HYPERTENSION
     Dosage: UNK
     Dates: start: 20000101
  8. ATORVASTATIN [Concomitant]
     Dosage: UNK
     Dates: start: 20010101
  9. OMNICEF [Concomitant]
     Dosage: 300 MG, UNK
  10. ASACOL [Concomitant]
     Indication: IRRITABLE BOWEL SYNDROME
     Dosage: 1200 MG, UNK
     Dates: start: 19990101
  11. PENTASA [Concomitant]

REACTIONS (14)
  - OEDEMA PERIPHERAL [None]
  - SUPERIOR SAGITTAL SINUS THROMBOSIS [None]
  - INJURY [None]
  - ANXIETY [None]
  - JUGULAR VEIN THROMBOSIS [None]
  - PAIN [None]
  - FEAR [None]
  - PULMONARY EMBOLISM [None]
  - TRANSVERSE SINUS THROMBOSIS [None]
  - PSYCHOLOGICAL TRAUMA [None]
  - PAIN IN EXTREMITY [None]
  - DEEP VEIN THROMBOSIS [None]
  - ANHEDONIA [None]
  - CHEST PAIN [None]
